FAERS Safety Report 15687747 (Version 1)
Quarter: 2018Q4

REPORT INFORMATION
  Report Type: Spontaneous
  Country: US (occurrence: US)
  Receive Date: 20181205
  Receipt Date: 20181205
  Transmission Date: 20190205
  Serious: No
  Sender: FDA-Public Use
  Company Number: US-ROCHE-2212553

PATIENT
  Age: 37 Year
  Sex: Female

DRUGS (3)
  1. MIDAZOLAM [Concomitant]
     Active Substance: MIDAZOLAM HYDROCHLORIDE
     Indication: ANAESTHESIA
  2. ACTILYSE [Suspect]
     Active Substance: ALTEPLASE
     Indication: ISCHAEMIC STROKE
     Dosage: TIME FROM SYMPTOM ONSET TO TPA WAS LESS THAN 1 HOUR.
     Route: 042
  3. FENTANYL. [Concomitant]
     Active Substance: FENTANYL
     Indication: ANAESTHESIA

REACTIONS (2)
  - Pregnancy [Unknown]
  - No adverse event [Unknown]
